FAERS Safety Report 13855073 (Version 2)
Quarter: 2017Q3

REPORT INFORMATION
  Report Type: Report from Study
  Country: US (occurrence: US)
  Receive Date: 20170810
  Receipt Date: 20170906
  Transmission Date: 20171127
  Serious: Yes (Death)
  Sender: FDA-Public Use
  Company Number: US-EXELIXIS-CABO-17010055

PATIENT
  Age: 65 Year
  Sex: Female

DRUGS (9)
  1. MEGACE [Concomitant]
     Active Substance: MEGESTROL ACETATE
  2. CABOMETYX [Suspect]
     Active Substance: CABOZANTINIB S-MALATE
     Indication: RENAL CANCER
     Dosage: 40 MG, QD
     Route: 048
     Dates: start: 20170405
  3. LASIX [Concomitant]
     Active Substance: FUROSEMIDE
  4. LYRICA [Concomitant]
     Active Substance: PREGABALIN
  5. INSULIN [Concomitant]
     Active Substance: INSULIN NOS
  6. CLARITIN [Concomitant]
     Active Substance: LORATADINE
  7. NORVASC [Concomitant]
     Active Substance: AMLODIPINE BESYLATE
  8. OMEPRAZOLE. [Concomitant]
     Active Substance: OMEPRAZOLE
  9. FLONASE [Concomitant]
     Active Substance: FLUTICASONE PROPIONATE

REACTIONS (1)
  - Malignant neoplasm progression [Fatal]

NARRATIVE: CASE EVENT DATE: 20170801
